FAERS Safety Report 11953869 (Version 4)
Quarter: 2018Q1

REPORT INFORMATION
  Report Type: Spontaneous
  Country: US (occurrence: US)
  Receive Date: 20160126
  Receipt Date: 20180215
  Transmission Date: 20180508
  Serious: No
  Sender: FDA-Public Use
  Company Number: US-PFIZER INC-2016042022

PATIENT
  Age: 88 Year
  Sex: Female
  Weight: 68 kg

DRUGS (2)
  1. NEURONTIN [Suspect]
     Active Substance: GABAPENTIN
     Dosage: 100 MG, UNK
  2. NEURONTIN [Suspect]
     Active Substance: GABAPENTIN
     Indication: POST HERPETIC NEURALGIA
     Dosage: 200 MG, 2X/DAY (ONE IN MORNING, ONE IN EVENING )
     Route: 048
     Dates: start: 201108

REACTIONS (8)
  - Pain in extremity [Unknown]
  - Neuralgia [Unknown]
  - Pre-existing condition improved [Unknown]
  - Intentional product misuse [Unknown]
  - Neck pain [Unknown]
  - Withdrawal syndrome [Unknown]
  - Arthralgia [Unknown]
  - Therapeutic response unexpected [Unknown]
